FAERS Safety Report 15268262 (Version 1)
Quarter: 2018Q3

REPORT INFORMATION
  Report Type: Spontaneous
  Country: US (occurrence: US)
  Receive Date: 20180725
  Receipt Date: 20180725
  Transmission Date: 20181010
  Serious: No
  Sender: FDA-Public Use
  Company Number: None

PATIENT
  Sex: Female

DRUGS (1)
  1. BUSPIRONE [Suspect]
     Active Substance: BUSPIRONE HYDROCHLORIDE
     Indication: ANXIETY
     Dosage: ?          QUANTITY:1 TABLET(S);?
     Route: 048
     Dates: start: 20180724, end: 20180725

REACTIONS (6)
  - Disorientation [None]
  - Disturbance in attention [None]
  - Paraesthesia [None]
  - Flushing [None]
  - Drug ineffective [None]
  - Recalled product [None]

NARRATIVE: CASE EVENT DATE: 20180724
